FAERS Safety Report 7735186-4 (Version None)
Quarter: 2011Q3

REPORT INFORMATION
  Report Type: 
  Country: None (occurrence: None)
  Receive Date: 20110907
  Receipt Date: 20110825
  Transmission Date: 20111222
  Serious: Yes (Hospitalization)
  Sender: FDA-Public Use
  Company Number: FR-SANOFI-AVENTIS-2011SA054473

PATIENT
  Age: 64 Year
  Sex: Female

DRUGS (9)
  1. PLAQUENIL [Suspect]
     Indication: RHEUMATOID ARTHRITIS
     Route: 048
  2. METHOTREXATE SODIUM [Suspect]
     Indication: RHEUMATOID ARTHRITIS
     Route: 048
  3. CALCIUM CARBONATE [Concomitant]
  4. POTASSIUM CHLORIDE [Concomitant]
  5. PREDNISONE [Suspect]
     Indication: RHEUMATOID ARTHRITIS
     Route: 048
     Dates: start: 20090501
  6. FOLIC ACID [Concomitant]
  7. IMMUNE GLOBULIN NOS [Concomitant]
     Indication: THROMBOCYTOPENIA
     Route: 042
     Dates: start: 20110707
  8. PROMACTA [Concomitant]
     Route: 048
     Dates: start: 20110701, end: 20110807
  9. APROVEL [Concomitant]
     Route: 048

REACTIONS (1)
  - HAEMATOMA INFECTION [None]
